FAERS Safety Report 17874725 (Version 1)
Quarter: 2020Q2

REPORT INFORMATION
  Report Type: Spontaneous
  Country: US (occurrence: US)
  Receive Date: 20200609
  Receipt Date: 20200609
  Transmission Date: 20200714
  Serious: Yes (Death, Other)
  Sender: FDA-Public Use
  Company Number: US-OXFORD PHARMACEUTICALS, LLC-2020OXF00069

PATIENT
  Age: 34 Year
  Sex: Female

DRUGS (3)
  1. CARISOPRODOL. [Suspect]
     Active Substance: CARISOPRODOL
  2. DIAZEPAM. [Suspect]
     Active Substance: DIAZEPAM
  3. HYDROCODONE [Suspect]
     Active Substance: HYDROCODONE

REACTIONS (2)
  - Death [Fatal]
  - Product administration error [Unknown]
